FAERS Safety Report 19559203 (Version 5)
Quarter: 2021Q4

REPORT INFORMATION
  Report Type: Report from Study
  Country: US (occurrence: US)
  Receive Date: 20210715
  Receipt Date: 20211224
  Transmission Date: 20220303
  Serious: No
  Sender: FDA-Public Use
  Company Number: US-KYOWAKIRIN-2021BKK012170

PATIENT

DRUGS (1)
  1. POTELIGEO [Suspect]
     Active Substance: MOGAMULIZUMAB-KPKC
     Indication: Product used for unknown indication
     Dosage: 49.8 MG, D 1, 8, 15, 22 THEN D 1, 15 EVERY 28 DAYS
     Route: 042
     Dates: start: 20210622

REACTIONS (6)
  - Memory impairment [Unknown]
  - Anxiety [Unknown]
  - Fatigue [Unknown]
  - Diarrhoea [Unknown]
  - Skin exfoliation [Unknown]
  - Therapy non-responder [Not Recovered/Not Resolved]
